FAERS Safety Report 4439266-0 (Version None)
Quarter: 2004Q3

REPORT INFORMATION
  Report Type: 
  Country: None (occurrence: None)
  Receive Date: 20040728
  Receipt Date: 20040419
  Transmission Date: 20050211
  Serious: No
  Sender: FDA-Public Use
  Company Number: USA040465352

PATIENT
  Age: 16 Year
  Sex: Male
  Weight: 84 kg

DRUGS (2)
  1. STRATTERA [Suspect]
     Indication: ATTENTION DEFICIT/HYPERACTIVITY DISORDER
     Dosage: 80 MG IN THE EVENING
     Dates: start: 20040322
  2. CARDIZEM [Concomitant]

REACTIONS (5)
  - AGITATION [None]
  - DRUG EFFECT DECREASED [None]
  - FATIGUE [None]
  - INCREASED APPETITE [None]
  - IRRITABILITY [None]
